FAERS Safety Report 23679049 (Version 1)
Quarter: 2024Q1

REPORT INFORMATION
  Report Type: Report from Study
  Country: EG (occurrence: EG)
  Receive Date: 20240327
  Receipt Date: 20240327
  Transmission Date: 20240410
  Serious: Yes (Disabling, Other)
  Sender: FDA-Public Use
  Company Number: EG-002147023-NVSC2024EG062071

PATIENT
  Age: 35 Year
  Sex: Female

DRUGS (4)
  1. KISQALI [Suspect]
     Active Substance: RIBOCICLIB
     Indication: Breast cancer metastatic
     Dosage: 3DOSAGEFORM,QD(THREE TABLETS ONCE DAILY FOR 21 DAYS AND 1 WEEK OFF)
     Route: 048
     Dates: start: 20230501
  2. ZOMETA [Suspect]
     Active Substance: ZOLEDRONIC ACID
     Indication: Bone disorder
     Dosage: 1 DOSAGE FORM, QMO
     Route: 042
     Dates: start: 202303
  3. IRON [Concomitant]
     Active Substance: IRON
     Indication: Mineral supplementation
     Dosage: 1 DOSAGE FORM, QD
     Route: 065
     Dates: start: 202302
  4. GOSERELIN [Concomitant]
     Active Substance: GOSERELIN
     Indication: Amenorrhoea
     Dosage: 1 DOSAGE FORM, QMO
     Route: 058
     Dates: start: 202303

REACTIONS (4)
  - Resorption bone increased [Recovering/Resolving]
  - Gait disturbance [Recovering/Resolving]
  - Decreased immune responsiveness [Not Recovered/Not Resolved]
  - Acne [Recovered/Resolved]
